FAERS Safety Report 9913610 (Version 1)
Quarter: 2014Q1

REPORT INFORMATION
  Report Type: Spontaneous
  Country: US (occurrence: None)
  Receive Date: 20140219
  Receipt Date: 20140219
  Transmission Date: 20141002
  Serious: Yes (Life-Threatening, Hospitalization)
  Sender: FDA-Public Use
  Company Number: None

PATIENT
  Age: 26 Year
  Sex: Male
  Weight: 72.58 kg

DRUGS (3)
  1. LAMOTRIGINE [Suspect]
     Route: 048
  2. OXCARBAZEPINE [Concomitant]
  3. LEXAPRO [Concomitant]

REACTIONS (2)
  - Incorrect dose administered [None]
  - Stevens-Johnson syndrome [None]
